FAERS Safety Report 23743419 (Version 1)
Quarter: 2024Q2

REPORT INFORMATION
  Report Type: Report from Study
  Country: US (occurrence: US)
  Receive Date: 20240415
  Receipt Date: 20240415
  Transmission Date: 20240716
  Serious: Yes (Other)
  Sender: FDA-Public Use
  Company Number: US-002147023-NVSC2024US076208

PATIENT
  Sex: Female

DRUGS (1)
  1. ENTRESTO [Suspect]
     Active Substance: SACUBITRIL\VALSARTAN
     Indication: Cardiovascular disorder
     Dosage: 24.26 MG, BID
     Route: 065
     Dates: start: 202310

REACTIONS (4)
  - Hip fracture [Unknown]
  - Myocardial infarction [Unknown]
  - Malaise [Unknown]
  - Cardiac disorder [Unknown]
